FAERS Safety Report 15778904 (Version 1)
Quarter: 2019Q1

REPORT INFORMATION
  Report Type: Spontaneous
  Country: CN (occurrence: CN)
  Receive Date: 20190101
  Receipt Date: 20190101
  Transmission Date: 20190417
  Serious: Yes (Other)
  Sender: FDA-Public Use
  Company Number: CN-ROCHE-2236578

PATIENT
  Age: 60 Year
  Sex: Male

DRUGS (12)
  1. AVASTIN [Suspect]
     Active Substance: BEVACIZUMAB
     Indication: METASTASES TO ADRENALS
     Dosage: 8TH CYCLE WITH 5-FLUROURACIL
     Route: 065
     Dates: start: 20170123
  2. FLUOROURACIL. [Concomitant]
     Active Substance: FLUOROURACIL
     Dosage: 5TH CYCLE TO THE 7TH CYCLE WITH BEVACIZUMAB
     Route: 065
     Dates: start: 20161119, end: 20170102
  3. AVASTIN [Suspect]
     Active Substance: BEVACIZUMAB
     Indication: COLON CANCER METASTATIC
     Dosage: 5 TH TO 7TH CYCLE WITH 5-FLUROURACIL
     Route: 065
     Dates: start: 20161119, end: 20170102
  4. AVASTIN [Suspect]
     Active Substance: BEVACIZUMAB
     Dosage: 9TH TO 13TH CYCLE WITH 5-FLUROURANIL
     Route: 065
     Dates: start: 20170213, end: 20170510
  5. AVASTIN [Suspect]
     Active Substance: BEVACIZUMAB
     Dosage: 16TH TO 18TH CYCLE WITH 5-FLUROURACIL
     Route: 065
     Dates: start: 20170712, end: 20170923
  6. FLUOROURACIL. [Concomitant]
     Active Substance: FLUOROURACIL
     Dosage: 8TH CYCLE WITH BEVACIZUMAB
     Route: 065
     Dates: start: 20170123
  7. FLUOROURACIL. [Concomitant]
     Active Substance: FLUOROURACIL
     Dosage: 16TH TO 18TH CYCLE WITH BEVACIZUMAB
     Route: 065
     Dates: start: 20170712, end: 20170923
  8. OXALIPLATIN. [Concomitant]
     Active Substance: OXALIPLATIN
     Dosage: D1 Q3W
     Route: 042
     Dates: start: 20160825, end: 20181006
  9. OXALIPLATIN. [Concomitant]
     Active Substance: OXALIPLATIN
     Dosage: D1 Q3W
     Route: 042
     Dates: start: 20181027
  10. XELODA [Suspect]
     Active Substance: CAPECITABINE
     Indication: COLON CANCER METASTATIC
     Dosage: BID FROM D1 TO D14 Q3W
     Route: 065
     Dates: start: 20160825
  11. XELODA [Suspect]
     Active Substance: CAPECITABINE
     Indication: METASTASES TO ADRENALS
     Dosage: BID FROM D1 TO D14 Q3W
     Route: 065
     Dates: start: 20170529, end: 20170621
  12. FLUOROURACIL. [Concomitant]
     Active Substance: FLUOROURACIL
     Dosage: 9TH TO 13TH CYCLE WITH BEVACIZUMAB
     Route: 065
     Dates: start: 20170213, end: 20170510

REACTIONS (8)
  - Alopecia [Unknown]
  - Asthenia [Unknown]
  - Vomiting [Unknown]
  - Rash [Unknown]
  - Diarrhoea [Unknown]
  - Bone marrow failure [Unknown]
  - Nausea [Unknown]
  - Mouth ulceration [Unknown]
